FAERS Safety Report 12079464 (Version 1)
Quarter: 2016Q1

REPORT INFORMATION
  Report Type: Spontaneous
  Country: JP (occurrence: JP)
  Receive Date: 20160216
  Receipt Date: 20160216
  Transmission Date: 20160526
  Serious: Yes (Other)
  Sender: FDA-Public Use
  Company Number: GXJP2016JP000503

PATIENT
  Age: 75 Year
  Sex: Male

DRUGS (2)
  1. TS-1 [Suspect]
     Active Substance: GIMERACIL\OTERACIL\TEGAFUR
     Indication: SQUAMOUS CELL CARCINOMA OF LUNG
     Route: 065
  2. CARBOPLATIN INTRAVENOUS INFUSION [Suspect]
     Active Substance: CARBOPLATIN
     Indication: SQUAMOUS CELL CARCINOMA OF LUNG
     Route: 065

REACTIONS (5)
  - Stomatitis [Recovering/Resolving]
  - Cytomegalovirus enterocolitis [Recovering/Resolving]
  - Diarrhoea [Recovering/Resolving]
  - Erythema multiforme [Recovering/Resolving]
  - Generalised erythema [Recovering/Resolving]
